FAERS Safety Report 18066973 (Version 1)
Quarter: 2020Q3

REPORT INFORMATION
  Report Type: Spontaneous
  Country: GB (occurrence: GB)
  Receive Date: 20200724
  Receipt Date: 20200724
  Transmission Date: 20201103
  Serious: Yes (Other)
  Sender: FDA-Public Use
  Company Number: GB-MYLANLABS-2020M1066126

PATIENT
  Age: 40 Year
  Sex: Male
  Weight: 79 kg

DRUGS (18)
  1. DOUBLEBASE [Concomitant]
     Active Substance: ISOPROPYL MYRISTATE\PARAFFIN
     Dosage: 1 DOSAGE FORM, PRN (APPLY)
     Dates: start: 20200421, end: 20200505
  2. LOPERAMIDE [Concomitant]
     Active Substance: LOPERAMIDE
     Indication: DIARRHOEA
     Dosage: 2 CAPSULES INITIALLY, 1 AFTER EVERY LOOSE STOOL
     Dates: start: 20200522, end: 20200619
  3. BECLOMETASONE [Concomitant]
     Active Substance: BECLOMETHASONE DIPROPIONATE
     Dosage: 8 DOSAGE FORM, QD (PUFFS, 2 UP EACH NOSTRIL)
     Dates: start: 20200618
  4. CETIRIZINE [Concomitant]
     Active Substance: CETIRIZINE HYDROCHLORIDE
     Dosage: 1 DOSAGE FORM, PRN (UP TO 1 A DAY)
     Dates: start: 20200602, end: 20200618
  5. CLOPIDOGREL [Concomitant]
     Active Substance: CLOPIDOGREL BISULFATE
     Dosage: 1 DOSAGE FORM, QD
     Dates: start: 20200527
  6. AMOROLFINE [Concomitant]
     Active Substance: AMOROLFINE
     Indication: NAIL DISORDER
     Dosage: APPLY AS DIRECTED
     Dates: start: 20200615
  7. MEBEVERINE HYDROCHLORIDE [Concomitant]
     Active Substance: MEBEVERINE HYDROCHLORIDE
     Dosage: 1 DOSAGE FORM (AT MEAL TIMES, 20 MINS PRE FOOD)
     Dates: start: 20200526, end: 20200602
  8. LANSOPRAZOLE. [Concomitant]
     Active Substance: LANSOPRAZOLE
     Dosage: 1 DOSAGE FORM (07:00)
     Dates: start: 20200218
  9. FEXOFENADINE [Suspect]
     Active Substance: FEXOFENADINE HYDROCHLORIDE
     Indication: PRODUCT USED FOR UNKNOWN INDICATION
     Dosage: 120 MILLIGRAM, QD
     Dates: start: 20200618
  10. METHADONE [Concomitant]
     Active Substance: METHADONE HYDROCHLORIDE
     Dosage: 6 MILLILITER
     Dates: start: 20200516, end: 20200520
  11. PARACETAMOL [Concomitant]
     Active Substance: ACETAMINOPHEN
     Dosage: 1 TO 2, UP TO 4 TIMES PER DAY
     Dates: start: 20200615, end: 20200617
  12. PROMETHAZINE HYDROCHLORIDE. [Concomitant]
     Active Substance: PROMETHAZINE HYDROCHLORIDE
     Dosage: 1 DOSAGE FORM, QD (AT NIGHT)
     Dates: start: 20200526, end: 20200530
  13. IBUPROFEN. [Concomitant]
     Active Substance: IBUPROFEN
     Dosage: 2 DOSAGE FORM, Q8H
     Dates: start: 20200622, end: 20200624
  14. MIRTAZAPINE. [Concomitant]
     Active Substance: MIRTAZAPINE
     Dosage: 1 DOSAGE FORM
     Dates: start: 20191202
  15. METOCLOPRAMIDE. [Concomitant]
     Active Substance: METOCLOPRAMIDE
     Dosage: 1 DOSAGE FORM, PRN (AT MEALTIMES)
     Dates: start: 20200526, end: 20200602
  16. ZOPICLONE [Concomitant]
     Active Substance: ZOPICLONE
     Dosage: 1 DOSAGE FORM
     Dates: start: 20200521, end: 20200522
  17. HYDROCORTISONE. [Concomitant]
     Active Substance: HYDROCORTISONE
     Indication: RASH
     Dosage: 2 DOSAGE FORM, QD (APPLY THINLY)
     Dates: start: 20200616
  18. CLOTRIMAZOLE. [Concomitant]
     Active Substance: CLOTRIMAZOLE
     Dosage: 2 DOSAGE FORM, QD (APPLY)
     Route: 061
     Dates: start: 20200506, end: 20200513

REACTIONS (1)
  - Vitiligo [Unknown]
